FAERS Safety Report 10010529 (Version 1)
Quarter: 2014Q1

REPORT INFORMATION
  Report Type: Spontaneous
  Country: US (occurrence: US)
  Receive Date: 20140314
  Receipt Date: 20140314
  Transmission Date: 20141002
  Serious: Yes (Hospitalization)
  Sender: FDA-Public Use
  Company Number: US-BRISTOL-MYERS SQUIBB COMPANY-20400651

PATIENT
  Age: 72 Year
  Sex: Male
  Weight: 79.5 kg

DRUGS (11)
  1. COUMADIN [Suspect]
     Indication: INTERNATIONAL NORMALISED RATIO ABNORMAL
     Dosage: 1.5MG ALSO TAKEN
     Route: 048
     Dates: start: 20120503, end: 20130811
  2. AXITINIB [Suspect]
     Indication: RENAL CANCER METASTATIC
     Route: 048
     Dates: start: 20031105, end: 20130811
  3. VITAMIN B6 [Concomitant]
     Dates: start: 20050903
  4. MEGACE [Concomitant]
     Indication: WEIGHT DECREASED
     Dates: start: 200507
  5. ALEVE [Concomitant]
     Indication: ARTHRALGIA
     Dates: start: 20061011
  6. NORVASC [Concomitant]
     Indication: HYPERTENSION
     Dates: start: 20071202, end: 20130811
  7. HYDROCHLOROTHIAZIDE [Concomitant]
     Indication: HYPERTENSION
     Dates: start: 20071205, end: 20130811
  8. DIGOXIN [Concomitant]
     Indication: ATRIAL FIBRILLATION
     Dates: start: 20120503
  9. FLECAINIDE [Concomitant]
     Indication: ATRIAL FIBRILLATION
     Dates: start: 20120801
  10. LIPITOR [Concomitant]
     Indication: BLOOD CHOLESTEROL INCREASED
     Dates: start: 20120801
  11. SYNTHROID [Concomitant]
     Indication: HYPOTHYROIDISM
     Dates: start: 20120807

REACTIONS (2)
  - Gastrointestinal haemorrhage [Recovered/Resolved]
  - Gastric ulcer [Recovered/Resolved]
